FAERS Safety Report 16041301 (Version 1)
Quarter: 2019Q2

REPORT INFORMATION
  Report Type: Spontaneous
  Country: US (occurrence: US)
  Receive Date: 20190305
  Receipt Date: 20190305
  Transmission Date: 20190711
  Serious: Yes (Other)
  Sender: FDA-Public Use
  Company Number: None

PATIENT
  Age: 77 Year
  Sex: Female
  Weight: 58.97 kg

DRUGS (7)
  1. ENTRESTO [Concomitant]
     Active Substance: SACUBITRIL\VALSARTAN
  2. DIGOXIN. [Concomitant]
     Active Substance: DIGOXIN
  3. NITROGLYCERIN. [Concomitant]
     Active Substance: NITROGLYCERIN
  4. ELIQUIS [Concomitant]
     Active Substance: APIXABAN
  5. AFINITOR [Suspect]
     Active Substance: EVEROLIMUS
     Indication: BREAST CANCER FEMALE
     Route: 048
     Dates: start: 20190201
  6. BISOPROLOL [Concomitant]
     Active Substance: BISOPROLOL
  7. CALCITONIN [Concomitant]
     Active Substance: CALCITONIN

REACTIONS (2)
  - Respiration abnormal [None]
  - Somnolence [None]
